FAERS Safety Report 14356258 (Version 2)
Quarter: 2019Q2

REPORT INFORMATION
  Report Type: Spontaneous
  Country: US (occurrence: US)
  Receive Date: 20180105
  Receipt Date: 20190606
  Transmission Date: 20190711
  Serious: No
  Sender: FDA-Public Use
  Company Number: US-ALLERGAN-1752641US

PATIENT
  Age: 63 Year
  Sex: Female
  Weight: 58.96 kg

DRUGS (6)
  1. KYBELLA [Suspect]
     Active Substance: DEOXYCHOLIC ACID
     Indication: SKIN WRINKLING
     Dosage: UNK, SINGLE
     Route: 058
     Dates: start: 201705, end: 201705
  2. KYBELLA [Suspect]
     Active Substance: DEOXYCHOLIC ACID
     Indication: FAT TISSUE INCREASED
  3. BOTOX COSMETIC [Concomitant]
     Active Substance: ONABOTULINUMTOXINA
     Dosage: UNK, SINGLE
     Route: 030
  4. VITAMIN D3 [Concomitant]
     Active Substance: CHOLECALCIFEROL
     Dosage: UNK, QD
  5. KYBELLA [Suspect]
     Active Substance: DEOXYCHOLIC ACID
     Indication: SKIN WRINKLING
  6. RESTYLANE [Concomitant]
     Active Substance: HYALURONIC ACID

REACTIONS (16)
  - Headache [Recovered/Resolved]
  - Pruritus [Recovered/Resolved]
  - Tenderness [Recovering/Resolving]
  - Urinary tract infection [Not Recovered/Not Resolved]
  - Contusion [Recovered/Resolved]
  - Swelling face [Recovering/Resolving]
  - Muscle twitching [Recovering/Resolving]
  - Facial pain [Unknown]
  - Ecchymosis [Recovered/Resolved]
  - Pain [Not Recovered/Not Resolved]
  - Lip swelling [Recovering/Resolving]
  - Dysphonia [Not Recovered/Not Resolved]
  - Off label use [Unknown]
  - Mass [Recovering/Resolving]
  - Oral contusion [Recovering/Resolving]
  - Nerve injury [Not Recovered/Not Resolved]

NARRATIVE: CASE EVENT DATE: 201705
